FAERS Safety Report 25541317 (Version 1)
Quarter: 2025Q3

REPORT INFORMATION
  Report Type: Spontaneous
  Country: EU (occurrence: EU)
  Receive Date: 20250711
  Receipt Date: 20250711
  Transmission Date: 20251020
  Serious: Yes (Other)
  Sender: Haleon PLC
  Company Number: EU-ABBVIE-5291261

PATIENT
  Age: 26 Year
  Sex: Female
  Weight: 47 kg

DRUGS (39)
  1. LAMISIL [Suspect]
     Active Substance: TERBINAFINE HYDROCHLORIDE
     Indication: Product used for unknown indication
  2. LAMISIL [Suspect]
     Active Substance: TERBINAFINE HYDROCHLORIDE
  3. CHLORPROMAZINE HYDROCHLORIDE [Suspect]
     Active Substance: CHLORPROMAZINE HYDROCHLORIDE
     Indication: Product used for unknown indication
  4. MINOCYCLINE HYDROCHLORIDE [Suspect]
     Active Substance: MINOCYCLINE HYDROCHLORIDE
     Indication: Product used for unknown indication
  5. PROCAINAMIDE HYDROCHLORIDE [Suspect]
     Active Substance: PROCAINAMIDE HYDROCHLORIDE
     Indication: Product used for unknown indication
  6. HYDROXYCHLOROQUINE [Concomitant]
     Active Substance: HYDROXYCHLOROQUINE
     Indication: Product used for unknown indication
  7. HYDROXYCHLOROQUINE [Concomitant]
     Active Substance: HYDROXYCHLOROQUINE
  8. HYDROXYCHLOROQUINE [Concomitant]
     Active Substance: HYDROXYCHLOROQUINE
  9. HYDROXYCHLOROQUINE [Concomitant]
     Active Substance: HYDROXYCHLOROQUINE
  10. HUMIRA [Suspect]
     Active Substance: ADALIMUMAB
     Indication: Product used for unknown indication
     Route: 058
  11. HUMIRA [Suspect]
     Active Substance: ADALIMUMAB
     Route: 058
  12. HUMIRA [Suspect]
     Active Substance: ADALIMUMAB
  13. VORICONAZOLE [Suspect]
     Active Substance: VORICONAZOLE
     Indication: Product used for unknown indication
  14. VORICONAZOLE [Suspect]
     Active Substance: VORICONAZOLE
  15. VORICONAZOLE [Suspect]
     Active Substance: VORICONAZOLE
  16. VORICONAZOLE [Suspect]
     Active Substance: VORICONAZOLE
  17. VORICONAZOLE [Suspect]
     Active Substance: VORICONAZOLE
  18. VORICONAZOLE [Suspect]
     Active Substance: VORICONAZOLE
  19. VORICONAZOLE [Suspect]
     Active Substance: VORICONAZOLE
  20. VORICONAZOLE [Suspect]
     Active Substance: VORICONAZOLE
  21. VORICONAZOLE [Suspect]
     Active Substance: VORICONAZOLE
  22. VORICONAZOLE [Suspect]
     Active Substance: VORICONAZOLE
  23. HYDRALAZINE HYDROCHLORIDE [Suspect]
     Active Substance: HYDRALAZINE HYDROCHLORIDE
     Indication: Product used for unknown indication
  24. HYDRALAZINE HYDROCHLORIDE [Suspect]
     Active Substance: HYDRALAZINE HYDROCHLORIDE
  25. QUINIDINE BISULFATE [Suspect]
     Active Substance: QUINIDINE BISULFATE
     Indication: Product used for unknown indication
  26. QUINIDINE BISULFATE [Suspect]
     Active Substance: QUINIDINE BISULFATE
  27. QUINIDINE BISULFATE [Suspect]
     Active Substance: QUINIDINE BISULFATE
  28. METHYLDOPA [Suspect]
     Active Substance: METHYLDOPA
     Indication: Product used for unknown indication
  29. METHYLDOPA [Suspect]
     Active Substance: METHYLDOPA
  30. METHYLDOPA [Suspect]
     Active Substance: METHYLDOPA
  31. METHYLDOPA [Suspect]
     Active Substance: METHYLDOPA
  32. METHYLDOPA [Suspect]
     Active Substance: METHYLDOPA
  33. METHYLDOPA [Suspect]
     Active Substance: METHYLDOPA
  34. METHYLDOPA [Suspect]
     Active Substance: METHYLDOPA
  35. METHYLDOPA [Suspect]
     Active Substance: METHYLDOPA
  36. METHYLDOPA [Suspect]
     Active Substance: METHYLDOPA
  37. METHYLDOPA [Suspect]
     Active Substance: METHYLDOPA
  38. METHYLDOPA [Suspect]
     Active Substance: METHYLDOPA
  39. METHYLDOPA [Suspect]
     Active Substance: METHYLDOPA

REACTIONS (34)
  - Systemic lupus erythematosus [Recovering/Resolving]
  - Pleural effusion [Unknown]
  - Pain [Unknown]
  - Somatic symptom disorder [Unknown]
  - Cognitive disorder [Unknown]
  - Depression [Unknown]
  - Pouchitis [Not Recovered/Not Resolved]
  - Antiphospholipid syndrome [Unknown]
  - Frequent bowel movements [Not Recovered/Not Resolved]
  - Infection [Unknown]
  - Myalgia [Unknown]
  - Gliosis [Unknown]
  - Lupus-like syndrome [Unknown]
  - Peripheral vein thrombosis [Unknown]
  - Polyserositis [Unknown]
  - Colitis ulcerative [Recovering/Resolving]
  - Atrial fibrillation [Unknown]
  - Erythema [Unknown]
  - Respiratory failure [Unknown]
  - Premature menopause [Unknown]
  - Normal newborn [Unknown]
  - Ascites [Unknown]
  - Maternal exposure during pregnancy [Unknown]
  - Ovarian failure [Unknown]
  - Peritonitis [Unknown]
  - Fatigue [Unknown]
  - Arthralgia [Unknown]
  - Photosensitivity reaction [Unknown]
  - Intervertebral disc protrusion [Unknown]
  - Arthritis [Unknown]
  - Cardiac tamponade [Unknown]
  - Live birth [Unknown]
  - Ileostomy [Unknown]
  - Proctectomy [Unknown]
